FAERS Safety Report 8177198 (Version 2)
Quarter: 2013Q4

REPORT INFORMATION
  Report Type: Spontaneous
  Country: US (occurrence: US)
  Receive Date: 20111012
  Receipt Date: 20131120
  Transmission Date: 20140711
  Serious: Yes (Other)
  Sender: FDA-Public Use
  Company Number: US-BAYER-2011-094393

PATIENT
  Age: 27 Year
  Sex: Female

DRUGS (10)
  1. YAZ [Suspect]
     Dosage: UNK
     Dates: start: 20090211, end: 200909
  2. YASMIN [Suspect]
     Dosage: UNK
     Dates: start: 200405, end: 200810
  3. NAPROXEN [Concomitant]
     Dosage: 500 MG, UNK
     Route: 048
  4. ERYTHROMYCIN [Concomitant]
     Dosage: 5 MG/G
     Route: 047
  5. MAGNESIUM CITRATE [Concomitant]
     Dosage: ONE BOTTLE NOW
     Route: 048
  6. TRAMADOL HYDROCHLORIDE [Concomitant]
     Dosage: 50 MG, UNK
     Route: 048
  7. DIBUCAINE [Concomitant]
  8. IBUPROFEN [Concomitant]
  9. DOCUSATE SODIUM [Concomitant]
  10. FERROUS SULFATE [Concomitant]

REACTIONS (7)
  - Gallbladder disorder [None]
  - Cholecystitis chronic [None]
  - Injury [None]
  - Pain [None]
  - Emotional distress [None]
  - Anxiety [None]
  - General physical health deterioration [None]
